FAERS Safety Report 14510485 (Version 1)
Quarter: 2018Q1

REPORT INFORMATION
  Report Type: Report from Study
  Country: US (occurrence: US)
  Receive Date: 20180209
  Receipt Date: 20180209
  Transmission Date: 20180509
  Serious: Yes (Other)
  Sender: FDA-Public Use
  Company Number: US-JNJFOC-20180136167

PATIENT
  Age: 38 Year
  Sex: Male
  Weight: 102.06 kg

DRUGS (3)
  1. STELARA [Suspect]
     Active Substance: USTEKINUMAB
     Indication: CROHN^S DISEASE
     Route: 042
     Dates: start: 201602, end: 201609
  2. STELARA [Suspect]
     Active Substance: USTEKINUMAB
     Indication: CROHN^S DISEASE
     Route: 042
     Dates: start: 201703, end: 201703
  3. STELARA [Suspect]
     Active Substance: USTEKINUMAB
     Indication: CROHN^S DISEASE
     Route: 042
     Dates: start: 2017

REACTIONS (5)
  - Hypertension [Not Recovered/Not Resolved]
  - Lyme disease [Unknown]
  - Hip arthroplasty [Unknown]
  - Drug effect decreased [Unknown]
  - Arthropod bite [Unknown]

NARRATIVE: CASE EVENT DATE: 201612
